FAERS Safety Report 19173853 (Version 1)
Quarter: 2021Q2

REPORT INFORMATION
  Report Type: Report from Study
  Country: US (occurrence: US)
  Receive Date: 20210423
  Receipt Date: 20210423
  Transmission Date: 20210717
  Serious: Yes (Hospitalization)
  Sender: FDA-Public Use
  Company Number: US-JNJFOC-20210429378

PATIENT
  Age: 55 Year
  Sex: Male
  Weight: 124.85 kg

DRUGS (3)
  1. SELEXIPAG [Suspect]
     Active Substance: SELEXIPAG
     Indication: PULMONARY ARTERIAL HYPERTENSION
     Dosage: UPTRAVI 800 MCG ORALLY 2 TIMES DAILY
     Route: 048
  2. AMBRISENTAN [Concomitant]
     Active Substance: AMBRISENTAN
  3. TADALAFIL. [Concomitant]
     Active Substance: TADALAFIL

REACTIONS (2)
  - Toe amputation [Unknown]
  - Osteomyelitis [Unknown]
